FAERS Safety Report 6419425-8 (Version None)
Quarter: 2009Q4

REPORT INFORMATION
  Report Type: 
  Country: None (occurrence: None)
  Receive Date: 20091029
  Receipt Date: 20091028
  Transmission Date: 20100525
  Serious: Yes (Other)
  Sender: FDA-Public Use
  Company Number: FR-WYE-G04505809

PATIENT
  Sex: Male

DRUGS (1)
  1. TORISEL [Suspect]
     Indication: RENAL CANCER METASTATIC
     Dosage: 25 MG (FREQUENCY UNKNOWN)
     Route: 042

REACTIONS (3)
  - HEPATIC FAILURE [None]
  - METASTASIS [None]
  - NAUSEA [None]
